FAERS Safety Report 18035074 (Version 2)
Quarter: 2021Q2

REPORT INFORMATION
  Report Type: Other
  Country: FR (occurrence: FR)
  Receive Date: 20200717
  Receipt Date: 20210615
  Transmission Date: 20210717
  Serious: Yes (Hospitalization, Other)
  Sender: FDA-Public Use
  Company Number: FR-CELLTRION INC.-2020FR022589

PATIENT

DRUGS (3)
  1. BENDAMUSTINE [Suspect]
     Active Substance: BENDAMUSTINE
     Indication: DIFFUSE LARGE B-CELL LYMPHOMA
     Dosage: CYCLE 2; 20/MAR/2020, CYCLE 3: 14/APR/2020, CYCLE 4: 19/MAY/2020, CYCLE 5: 16/JUN/2020
     Route: 042
  2. RITUXIMAB (UNKNOWN) [Suspect]
     Active Substance: RITUXIMAB
     Indication: DIFFUSE LARGE B-CELL LYMPHOMA
     Dosage: CYCLE 2; 20/MAR/2020, CYCLE 3: 14/APR/2020, CYCLE 4: 19/MAY/2020, CYCLE 5: 16/JUN/2020
     Route: 041
     Dates: start: 20200228
  3. POLATUZUMAB VEDOTIN. [Suspect]
     Active Substance: POLATUZUMAB VEDOTIN
     Indication: DIFFUSE LARGE B-CELL LYMPHOMA
     Dosage: CYCLE 2 ON 20/MAR/2020, CYCLE 3; 14/APR/2020, CYCLE 4: 19/MAY/2020, CYCLE 5; 16/JUN/2020
     Route: 042
     Dates: start: 20200228

REACTIONS (6)
  - Thrombocytopenia [Not Recovered/Not Resolved]
  - Haemorrhoids [Recovered/Resolved with Sequelae]
  - Rectal haemorrhage [Recovered/Resolved with Sequelae]
  - Infection [Recovered/Resolved]
  - Anaemia [Not Recovered/Not Resolved]
  - Neutropenia [Recovered/Resolved]

NARRATIVE: CASE EVENT DATE: 20200314
